FAERS Safety Report 9114258 (Version 1)
Quarter: 2013Q1

REPORT INFORMATION
  Report Type: Spontaneous
  Country: GR (occurrence: GR)
  Receive Date: 20130208
  Receipt Date: 20130208
  Transmission Date: 20140127
  Serious: Yes (Hospitalization, Other)
  Sender: FDA-Public Use
  Company Number: GR-BRISTOL-MYERS SQUIBB COMPANY-17336462

PATIENT
  Age: 61 Year
  Sex: Male

DRUGS (2)
  1. COAPROVEL [Suspect]
     Indication: BLOOD PRESSURE
     Dosage: 1DF=150+12.5 UNITS NOS
  2. APROVEL [Suspect]
     Indication: BLOOD PRESSURE

REACTIONS (2)
  - Blood creatine phosphokinase increased [Recovered/Resolved]
  - Myocardial infarction [Unknown]
